FAERS Safety Report 4820282-1 (Version None)
Quarter: 2005Q4

REPORT INFORMATION
  Report Type: 
  Country: None (occurrence: None)
  Receive Date: 20051104
  Receipt Date: 20050929
  Transmission Date: 20060501
  Serious: No
  Sender: FDA-Public Use
  Company Number: JP-BOEHRINGER INGELHEIM PHARMACEUTICALS, INC.-2005-BP-17265NB

PATIENT
  Sex: Female
  Weight: 49.4 kg

DRUGS (9)
  1. MICARDIS [Suspect]
     Indication: HYPERTENSION
     Route: 048
     Dates: start: 20050402, end: 20050513
  2. SUNRYTHM [Concomitant]
     Indication: WOLFF-PARKINSON-WHITE SYNDROME
     Route: 048
  3. INDERAL [Concomitant]
     Indication: WOLFF-PARKINSON-WHITE SYNDROME
     Route: 048
  4. AMARYL [Concomitant]
     Indication: DIABETES MELLITUS
     Route: 048
     Dates: end: 20050629
  5. KINEDAK [Concomitant]
     Indication: DIABETES MELLITUS
     Route: 048
     Dates: end: 20050802
  6. URSODIOL [Concomitant]
     Indication: HEPATITIS C
     Route: 048
  7. BLOPRESS [Concomitant]
     Indication: HYPERTENSION
     Route: 048
  8. A-M [Concomitant]
     Indication: STOMACH DISCOMFORT
     Route: 048
     Dates: start: 20050509, end: 20050516
  9. DEPAS [Concomitant]
     Indication: ANXIETY
     Route: 048
     Dates: end: 20050624

REACTIONS (1)
  - HYPOKALAEMIA [None]
